FAERS Safety Report 5202432-0 (Version None)
Quarter: 2007Q1

REPORT INFORMATION
  Report Type: 
  Country: None (occurrence: None)
  Receive Date: 20070109
  Receipt Date: 20061228
  Transmission Date: 20070707
  Serious: Yes (Other)
  Sender: FDA-Public Use
  Company Number: PHBS2006AR20140

PATIENT
  Sex: Female

DRUGS (1)
  1. LAMISIL [Suspect]
     Dosage: 1 DF, QD
     Route: 048
     Dates: start: 20061201, end: 20061201

REACTIONS (2)
  - SYNCOPE [None]
  - VOMITING [None]
